FAERS Safety Report 4615246-7 (Version None)
Quarter: 2005Q1

REPORT INFORMATION
  Report Type: 
  Country: None (occurrence: None)
  Receive Date: 20050317
  Receipt Date: 20050311
  Transmission Date: 20050727
  Serious: Yes (Other)
  Sender: FDA-Public Use
  Company Number: GBWYE504815MAR05

PATIENT
  Sex: Male

DRUGS (2)
  1. EFFEXOR [Suspect]
     Indication: DEPRESSION
     Dosage: 37.5 MG 1 X PER 1 DAY, ORAL
     Route: 048
  2. LORAZEPAM (LOREZAPAM) [Concomitant]

REACTIONS (5)
  - CEREBRAL HAEMORRHAGE [None]
  - CONGENITAL ANOMALY [None]
  - CONGENITAL BRAIN DAMAGE [None]
  - CONGENITAL CEREBRAL CYST [None]
  - DRUG EXPOSURE DURING PREGNANCY [None]
